FAERS Safety Report 25505134 (Version 1)
Quarter: 2025Q3

REPORT INFORMATION
  Report Type: Spontaneous
  Country: US (occurrence: US)
  Receive Date: 20250702
  Receipt Date: 20250702
  Transmission Date: 20251020
  Serious: No
  Sender: SAREPTA THERAPEUTICS
  Company Number: US-SAREPTA THERAPEUTICS INC.-SRP2024-005358

PATIENT
  Age: 5 Year
  Sex: Male
  Weight: 19.78 kg

DRUGS (6)
  1. EXONDYS 51 [Suspect]
     Active Substance: ETEPLIRSEN
     Indication: Duchenne muscular dystrophy
     Route: 042
     Dates: start: 20201014, end: 20240922
  2. EXONDYS 51 [Suspect]
     Active Substance: ETEPLIRSEN
     Route: 042
     Dates: start: 20241011, end: 20241011
  3. EXONDYS 51 [Suspect]
     Active Substance: ETEPLIRSEN
     Route: 042
     Dates: start: 20241023, end: 20241105
  4. EXONDYS 51 [Suspect]
     Active Substance: ETEPLIRSEN
     Route: 042
     Dates: start: 20241119
  5. PREDNISOLONE [Concomitant]
     Active Substance: PREDNISOLONE
     Indication: Duchenne muscular dystrophy
     Route: 048
     Dates: start: 20230425
  6. VITAMIN D3 [Concomitant]
     Active Substance: CHOLECALCIFEROL
     Indication: Duchenne muscular dystrophy
     Dosage: 1200 INTERNATIONAL UNIT, QD
     Route: 048
     Dates: start: 20220809

REACTIONS (4)
  - Malaise [Unknown]
  - Device issue [Unknown]
  - Product dose omission issue [Unknown]
  - Product dose omission issue [Unknown]

NARRATIVE: CASE EVENT DATE: 20241004
